FAERS Safety Report 15093758 (Version 1)
Quarter: 2018Q2

REPORT INFORMATION
  Report Type: Spontaneous
  Country: US (occurrence: US)
  Receive Date: 20180629
  Receipt Date: 20180629
  Transmission Date: 20180711
  Serious: Yes (Hospitalization)
  Sender: FDA-Public Use
  Company Number: US-ACTELION-A-NJ2018-174287

PATIENT
  Age: 74 Year
  Sex: Male

DRUGS (1)
  1. VELETRI [Suspect]
     Active Substance: EPOPROSTENOL
     Indication: PULMONARY ARTERIAL HYPERTENSION
     Dosage: 13 NG/KG, PER MIN
     Route: 042
     Dates: start: 20180525

REACTIONS (6)
  - Fall [Unknown]
  - Nausea [Unknown]
  - Malaise [Unknown]
  - Pain in jaw [Unknown]
  - Contusion [Unknown]
  - Fatigue [Unknown]

NARRATIVE: CASE EVENT DATE: 20180624
